FAERS Safety Report 9297763 (Version 1)
Quarter: 2013Q2

REPORT INFORMATION
  Report Type: Report from Study
  Country: AR (occurrence: AR)
  Receive Date: 20130520
  Receipt Date: 20130520
  Transmission Date: 20140414
  Serious: Yes (Other)
  Sender: FDA-Public Use
  Company Number: PHHY2013AR049509

PATIENT
  Sex: Female

DRUGS (2)
  1. DIOVAN D [Suspect]
     Indication: HYPERTENSION
     Dosage: (160/ UNKNOWN MG), DAILY
     Route: 048
     Dates: start: 201211, end: 20130512
  2. CHEMOTHERAPEUTICS NOS [Concomitant]
     Indication: BREAST CANCER
     Dosage: UNK UKN, UNK
     Route: 048

REACTIONS (3)
  - Metastases to lung [Unknown]
  - Pulmonary mass [Unknown]
  - Blood pressure increased [Recovered/Resolved]
